FAERS Safety Report 9126981 (Version 1)
Quarter: 2013Q1

REPORT INFORMATION
  Report Type: Spontaneous
  Country: MX (occurrence: MX)
  Receive Date: 20130228
  Receipt Date: 20130228
  Transmission Date: 20140127
  Serious: Yes (Other)
  Sender: FDA-Public Use
  Company Number: MX-UCBSA-079342

PATIENT
  Age: 89 Year
  Sex: Female
  Weight: 55 kg

DRUGS (4)
  1. NUBRENZA [Suspect]
     Indication: PARKINSON^S DISEASE
     Dosage: 8 MG DAILY
     Route: 062
     Dates: start: 20120819, end: 20130219
  2. CLOPIDOGREL [Concomitant]
     Indication: THROMBOSIS
     Route: 048
     Dates: start: 2011
  3. RIVASTIGMINA [Concomitant]
     Indication: SENILE DEMENTIA
     Route: 062
     Dates: start: 2011
  4. VENOTONICO [Concomitant]
     Indication: CARDIOVASCULAR DISORDER
     Route: 048
     Dates: start: 2011

REACTIONS (4)
  - Hypotension [Recovered/Resolved]
  - Syncope [Recovered/Resolved]
  - Bradypnoea [Recovered/Resolved]
  - Cyanosis [Recovered/Resolved]
